FAERS Safety Report 11767613 (Version 1)
Quarter: 2015Q4

REPORT INFORMATION
  Report Type: Spontaneous
  Country: US (occurrence: US)
  Receive Date: 20151123
  Receipt Date: 20151123
  Transmission Date: 20160304
  Serious: Yes (Other)
  Sender: FDA-Public Use
  Company Number: US-GLAXOSMITHKLINE-US2015165760

PATIENT
  Sex: Male

DRUGS (3)
  1. BENZONATATE. [Concomitant]
     Active Substance: BENZONATATE
  2. ANORO ELLIPTA [Suspect]
     Active Substance: UMECLIDINIUM BROMIDE\VILANTEROL TRIFENATATE
     Indication: DYSPNOEA
     Route: 055
  3. VENTOLIN HFA [Suspect]
     Active Substance: ALBUTEROL SULFATE
     Indication: DYSPNOEA
     Route: 055

REACTIONS (8)
  - Adverse drug reaction [Unknown]
  - Dyspnoea [Recovering/Resolving]
  - Secretion discharge [Recovering/Resolving]
  - Pneumonia [Recovering/Resolving]
  - Malaise [Unknown]
  - Condition aggravated [Unknown]
  - Pulmonary congestion [Recovering/Resolving]
  - Drug ineffective [Unknown]
